FAERS Safety Report 8371629-3 (Version None)
Quarter: 2012Q2

REPORT INFORMATION
  Report Type: 
  Country: None (occurrence: None)
  Receive Date: 20120518
  Receipt Date: 20120507
  Transmission Date: 20120825
  Serious: No
  Sender: FDA-Public Use
  Company Number: US-ASTRAZENECA-2012SE29751

PATIENT
  Age: 62 Year
  Sex: Female

DRUGS (20)
  1. ATIVAN [Concomitant]
  2. NEXIUM [Concomitant]
  3. MAALOX MULTI SYMPTOM [Concomitant]
     Indication: DYSPEPSIA
  4. LEVOXOL [Concomitant]
  5. VOLTAREN [Concomitant]
  6. FLUTICASONE PRORIONATE CREAM [Concomitant]
  7. FORADIL [Concomitant]
  8. ASTALIN [Concomitant]
  9. POTASSIUM CHLORIDE [Concomitant]
  10. TRAZODONE HCL [Concomitant]
     Indication: SLEEP DISORDER
  11. LISINOPRIL [Suspect]
     Route: 048
     Dates: start: 20111001
  12. ATROVENT [Concomitant]
  13. ENJUVIA [Concomitant]
  14. MAALOX MULTI SYMPTOM [Concomitant]
     Indication: HYPERCHLORHYDRIA
  15. TEKTURNA [Concomitant]
  16. MEDROXYPROGESTERONE ACETATE [Concomitant]
  17. VERAMYST [Concomitant]
  18. XOPENEX HFA [Concomitant]
  19. BEENO [Concomitant]
  20. PAMALOR [Concomitant]
     Indication: FIBROMYALGIA

REACTIONS (2)
  - BLOOD PRESSURE DECREASED [None]
  - INCORRECT DOSE ADMINISTERED [None]
